FAERS Safety Report 10922284 (Version 4)
Quarter: 2015Q2

REPORT INFORMATION
  Report Type: Report from Study
  Country: DE (occurrence: DE)
  Receive Date: 20150317
  Receipt Date: 20150522
  Transmission Date: 20150821
  Serious: Yes (Hospitalization)
  Sender: FDA-Public Use
  Company Number: PHHY2015DE027293

PATIENT
  Age: 37 Year
  Sex: Female

DRUGS (1)
  1. GILENYA [Suspect]
     Active Substance: FINGOLIMOD HYDROCHLORIDE
     Indication: MULTIPLE SCLEROSIS
     Dosage: 0.5 MG, QD
     Route: 048
     Dates: start: 20141202

REACTIONS (7)
  - Cognitive disorder [Not Recovered/Not Resolved]
  - Back pain [Recovering/Resolving]
  - Nasopharyngitis [Not Recovered/Not Resolved]
  - Central nervous system lesion [Not Recovered/Not Resolved]
  - Gait disturbance [Recovering/Resolving]
  - Pain in extremity [Recovering/Resolving]
  - Chest discomfort [Recovered/Resolved with Sequelae]

NARRATIVE: CASE EVENT DATE: 201501
